FAERS Safety Report 23231526 (Version 1)
Quarter: 2023Q4

REPORT INFORMATION
  Report Type: Spontaneous
  Country: GR (occurrence: GR)
  Receive Date: 20231127
  Receipt Date: 20231127
  Transmission Date: 20240110
  Serious: Yes (Other)
  Sender: FDA-Public Use
  Company Number: GR-CELLTRION HEALTHCARE HUNGARY KFT-2023GR013490

PATIENT
  Age: 42 Year
  Sex: Male

DRUGS (2)
  1. ADALIMUMAB [Suspect]
     Active Substance: ADALIMUMAB\ISOPROPYL ALCOHOL
     Indication: Rheumatoid arthritis
     Dosage: UNK
     Route: 058
  2. ADALIMUMAB [Suspect]
     Active Substance: ADALIMUMAB\ISOPROPYL ALCOHOL
     Dosage: UNK
     Route: 065

REACTIONS (4)
  - Optic neuritis [Recovering/Resolving]
  - Sudden visual loss [Recovering/Resolving]
  - Optic neuropathy [Recovering/Resolving]
  - Blindness [Recovering/Resolving]
